FAERS Safety Report 16634588 (Version 2)
Quarter: 2019Q3

REPORT INFORMATION
  Report Type: Spontaneous
  Country: US (occurrence: US)
  Receive Date: 20190726
  Receipt Date: 20190815
  Transmission Date: 20191004
  Serious: No
  Sender: FDA-Public Use
  Company Number: US-ASTRAZENECA-2019SE94153

PATIENT
  Age: 571 Month
  Sex: Male

DRUGS (1)
  1. PULMICORT FLEXHALER [Suspect]
     Active Substance: BUDESONIDE
     Dosage: 180.0UG UNKNOWN
     Route: 055

REACTIONS (4)
  - Loss of consciousness [Recovered/Resolved]
  - Intentional product misuse [Recovered/Resolved]
  - Device issue [Unknown]
  - Product dose omission [Not Recovered/Not Resolved]

NARRATIVE: CASE EVENT DATE: 201906
